FAERS Safety Report 12377062 (Version 1)
Quarter: 2016Q2

REPORT INFORMATION
  Report Type: Spontaneous
  Country: US (occurrence: US)
  Receive Date: 20160517
  Receipt Date: 20160517
  Transmission Date: 20160815
  Serious: No
  Sender: FDA-Public Use
  Company Number: US-RELYPSA-RLY2016000161

PATIENT

DRUGS (1)
  1. VELTASSA [Suspect]
     Active Substance: PATIROMER
     Indication: HYPERKALAEMIA
     Dosage: 4 TIMES WEEKLY

REACTIONS (3)
  - Abdominal pain upper [Unknown]
  - Vomiting [Unknown]
  - Malaise [Unknown]
